FAERS Safety Report 23823934 (Version 1)
Quarter: 2024Q2

REPORT INFORMATION
  Report Type: Spontaneous
  Country: US (occurrence: US)
  Receive Date: 20240507
  Receipt Date: 20240507
  Transmission Date: 20240716
  Serious: Yes (Other)
  Sender: FDA-Public Use
  Company Number: US-ABBVIE-5747455

PATIENT
  Sex: Female

DRUGS (1)
  1. VRAYLAR [Suspect]
     Active Substance: CARIPRAZINE
     Indication: Major depression
     Dosage: FORM STRENGTH: 1.5 MILLIGRAM?FREQUENCY TEXT: 1.5MG IN AM AND 1.5MG IN PM
     Route: 048

REACTIONS (4)
  - Sepsis [Unknown]
  - Mania [Unknown]
  - Spinal fracture [Unknown]
  - Fall [Unknown]
